FAERS Safety Report 8388090-5 (Version None)
Quarter: 2012Q2

REPORT INFORMATION
  Report Type: 
  Country: None (occurrence: None)
  Receive Date: 20120525
  Receipt Date: 20120518
  Transmission Date: 20120825
  Serious: Yes (Hospitalization)
  Sender: FDA-Public Use
  Company Number: CH-TEVA-339070USA

PATIENT
  Age: 46 Year
  Sex: Female

DRUGS (11)
  1. DIPYRONE TAB [Concomitant]
  2. PREDNISOLONE [Concomitant]
     Dates: start: 20120315, end: 20120316
  3. DIFLUCAN [Concomitant]
  4. PANTOPRAZOLE [Concomitant]
  5. KYTRIL [Concomitant]
  6. TREANDA [Suspect]
     Indication: NON-HODGKIN'S LYMPHOMA
     Dosage: UID/QD
     Route: 042
     Dates: start: 20120316, end: 20120317
  7. MAGNESIOCARD [Concomitant]
     Dates: start: 20120315, end: 20120316
  8. BECOZYME [Concomitant]
  9. GREFEN [Concomitant]
  10. MABTHERA [Suspect]
     Indication: NON-HODGKIN'S LYMPHOMA
     Dosage: CYCLIC
     Route: 042
     Dates: start: 20120215, end: 20120315
  11. SULFAMETHOXAZOLE AND TRIMETHOPRIM [Concomitant]

REACTIONS (8)
  - NAUSEA [None]
  - ANGINA PECTORIS [None]
  - ELECTROCARDIOGRAM ABNORMAL [None]
  - PAIN IN EXTREMITY [None]
  - CHEST PAIN [None]
  - HYPERVENTILATION [None]
  - CARDIAC ENZYMES INCREASED [None]
  - DIZZINESS [None]
